FAERS Safety Report 11263734 (Version 2)
Quarter: 2015Q3

REPORT INFORMATION
  Report Type: Report from Study
  Country: US (occurrence: US)
  Receive Date: 20150713
  Receipt Date: 20150826
  Transmission Date: 20151125
  Serious: Yes (Death, Life-Threatening, Hospitalization, Disabling, Other)
  Sender: FDA-Public Use
  Company Number: US-GILEAD-2015-0162836

PATIENT
  Age: 17 Year
  Sex: Female
  Weight: 35 kg

DRUGS (3)
  1. ADCIRCA [Concomitant]
     Active Substance: TADALAFIL
     Dosage: UNK
  2. MILRINONE [Concomitant]
     Active Substance: MILRINONE
  3. AMBRISENTAN [Suspect]
     Active Substance: AMBRISENTAN
     Indication: PULMONARY ARTERIAL HYPERTENSION
     Dosage: 10 MG, QD
     Route: 065
     Dates: start: 20141008

REACTIONS (3)
  - Hypoxia [Fatal]
  - Pulmonary arterial hypertension [Fatal]
  - Off label use [Unknown]

NARRATIVE: CASE EVENT DATE: 20141008
